FAERS Safety Report 6813964-3 (Version None)
Quarter: 2010Q3

REPORT INFORMATION
  Report Type: 
  Country: None (occurrence: None)
  Receive Date: 20100702
  Receipt Date: 20100622
  Transmission Date: 20110219
  Serious: Yes (Hospitalization)
  Sender: FDA-Public Use
  Company Number: US-JNJFOC-20100510510

PATIENT
  Sex: Male
  Weight: 96.6 kg

DRUGS (3)
  1. INFLIXIMAB [Suspect]
     Indication: PSORIASIS
     Route: 042
  2. STELARA [Suspect]
     Indication: PSORIASIS
  3. METHOTREXATE [Concomitant]

REACTIONS (4)
  - ATRIAL FIBRILLATION [None]
  - CARDIOMYOPATHY [None]
  - CORONARY ARTERY DISEASE [None]
  - PLEURAL EFFUSION [None]
